FAERS Safety Report 9742974 (Version 1)
Quarter: 2013Q4

REPORT INFORMATION
  Report Type: Spontaneous
  Country: US (occurrence: US)
  Receive Date: 20131210
  Receipt Date: 20131210
  Transmission Date: 20140711
  Serious: No
  Sender: FDA-Public Use
  Company Number: US-TEVA-371595USA

PATIENT
  Sex: Female

DRUGS (1)
  1. BUDESONIDE [Suspect]
     Dates: start: 201210, end: 201211

REACTIONS (3)
  - Oral herpes [Unknown]
  - Swollen tongue [Unknown]
  - Viral infection [Unknown]
